FAERS Safety Report 12086999 (Version 1)
Quarter: 2016Q1

REPORT INFORMATION
  Report Type: Spontaneous
  Country: US (occurrence: US)
  Receive Date: 20160217
  Receipt Date: 20160217
  Transmission Date: 20160526
  Serious: No
  Sender: FDA-Public Use
  Company Number: US-ALLERGAN-1507580US

PATIENT
  Sex: Female

DRUGS (1)
  1. RESTASIS [Suspect]
     Active Substance: CYCLOSPORINE
     Indication: SJOGREN^S SYNDROME
     Dosage: 1 GTT EACH EYE TWICE A DAY
     Route: 047
     Dates: start: 201311

REACTIONS (11)
  - Ocular hyperaemia [Unknown]
  - Eye pain [Unknown]
  - Medication residue present [Not Recovered/Not Resolved]
  - Eye irritation [Not Recovered/Not Resolved]
  - Drug hypersensitivity [Unknown]
  - Visual acuity reduced transiently [Unknown]
  - Foreign body sensation in eyes [Not Recovered/Not Resolved]
  - Off label use [Unknown]
  - Product quality issue [Unknown]
  - Presbyopia [Not Recovered/Not Resolved]
  - Eye injury [Unknown]

NARRATIVE: CASE EVENT DATE: 20150303
